FAERS Safety Report 5376419-1 (Version None)
Quarter: 2007Q3

REPORT INFORMATION
  Report Type: 
  Country: None (occurrence: None)
  Receive Date: 20070702
  Receipt Date: 20070620
  Transmission Date: 20080115
  Serious: Yes (Other)
  Sender: FDA-Public Use
  Company Number: GB-PFIZER INC-2007051601

PATIENT
  Age: 61 Year
  Sex: Female

DRUGS (5)
  1. LYRICA [Suspect]
  2. CLONAZEPAM [Concomitant]
  3. CO-DYDRAMOL [Concomitant]
  4. CODEINE PHOSPHATE AND ACETAMINOPHEN [Concomitant]
  5. PARACETAMOL [Concomitant]

REACTIONS (6)
  - BLADDER SPHINCTER ATONY [None]
  - DIZZINESS [None]
  - EXTRASYSTOLES [None]
  - MUSCLE SPASMS [None]
  - PALPITATIONS [None]
  - SOMNOLENCE [None]
